FAERS Safety Report 5312415-8 (Version None)
Quarter: 2007Q2

REPORT INFORMATION
  Report Type: 
  Country: None (occurrence: None)
  Receive Date: 20070430
  Receipt Date: 20061017
  Transmission Date: 20071010
  Serious: No
  Sender: FDA-Public Use
  Company Number: 2006UW20064

PATIENT
  Age: 19 Year
  Sex: Male
  Weight: 62.6 kg

DRUGS (2)
  1. NEXIUM [Suspect]
     Indication: GASTRITIS
     Route: 048
     Dates: start: 20050101
  2. NEXIUM [Suspect]
     Indication: GASTROOESOPHAGEAL REFLUX DISEASE
     Route: 048
     Dates: start: 20050101

REACTIONS (3)
  - DYSARTHRIA [None]
  - HEADACHE [None]
  - WEIGHT DECREASED [None]
